FAERS Safety Report 6428476-9 (Version None)
Quarter: 2009Q4

REPORT INFORMATION
  Report Type: 
  Country: None (occurrence: None)
  Receive Date: 20091105
  Receipt Date: 20091028
  Transmission Date: 20100525
  Serious: Yes (Hospitalization)
  Sender: FDA-Public Use
  Company Number: B0601914A

PATIENT
  Sex: Female

DRUGS (10)
  1. DILATREND [Suspect]
     Indication: DRUG USE FOR UNKNOWN INDICATION
     Dosage: 12.5MG ALTERNATE DAYS
     Route: 048
     Dates: end: 20090228
  2. CONCOR [Suspect]
     Indication: DRUG USE FOR UNKNOWN INDICATION
     Dosage: 10MG PER DAY
     Route: 048
     Dates: end: 20090228
  3. ENALAPRIL [Concomitant]
  4. NITRODERM [Concomitant]
  5. MAGNESIUM DIASPORAL [Concomitant]
  6. ATROVENT [Concomitant]
  7. REMERON [Concomitant]
  8. ZOLPIDEM [Concomitant]
  9. METFORMIN [Concomitant]
  10. CALCIMAGON [Concomitant]

REACTIONS (3)
  - BRADYCARDIA [None]
  - CARDIAC ARREST [None]
  - RESPIRATORY FAILURE [None]
